FAERS Safety Report 23102052 (Version 5)
Quarter: 2024Q2

REPORT INFORMATION
  Report Type: Spontaneous
  Country: CA (occurrence: CA)
  Receive Date: 20231025
  Receipt Date: 20240511
  Transmission Date: 20240716
  Serious: Yes (Hospitalization, Other)
  Sender: FDA-Public Use
  Company Number: CA-CELLTRION INC.-2023CA020624

PATIENT

DRUGS (3)
  1. INFLECTRA [Suspect]
     Active Substance: INFLIXIMAB-DYYB
     Indication: Colitis ulcerative
     Dosage: 500 MG, AT WEEK 0, 2 AND 6 THEN Q 8 WEEKS
     Route: 042
     Dates: start: 202307
  2. INFLECTRA [Suspect]
     Active Substance: INFLIXIMAB-DYYB
     Dosage: 500 MG, AT WEEK 0, 2 AND 6 THEN Q 8 WEEKS
     Route: 042
     Dates: start: 20230716
  3. INFLECTRA [Suspect]
     Active Substance: INFLIXIMAB-DYYB
     Dosage: UNSPECIFIED DOSE AND FREQUENCY
     Route: 042
     Dates: start: 2023

REACTIONS (2)
  - Drug ineffective [Unknown]
  - Condition aggravated [Not Recovered/Not Resolved]
